FAERS Safety Report 4632489-7 (Version None)
Quarter: 2005Q2

REPORT INFORMATION
  Report Type: 
  Country: None (occurrence: None)
  Receive Date: 20050411
  Receipt Date: 20050331
  Transmission Date: 20051028
  Serious: Yes (Other)
  Sender: FDA-Public Use
  Company Number: JP-ABBOTT-05P-087-0295978-00

PATIENT
  Age: 22 Year
  Sex: Female

DRUGS (4)
  1. KLARICID [Suspect]
     Indication: NASOPHARYNGITIS
     Route: 048
     Dates: start: 20040524, end: 20040526
  2. FOMINOBEN HYDROCHLORIDE [Concomitant]
     Indication: NASOPHARYNGITIS
     Route: 048
     Dates: start: 20040524, end: 20040526
  3. CLOPERASTINE [Concomitant]
     Indication: NASOPHARYNGITIS
     Route: 048
     Dates: start: 20040524, end: 20040526
  4. PELEX [Concomitant]
     Indication: NASOPHARYNGITIS
     Route: 048
     Dates: start: 20040524, end: 20040526

REACTIONS (4)
  - BLINDNESS TRANSIENT [None]
  - ELECTROCARDIOGRAM QT PROLONGED [None]
  - LOSS OF CONSCIOUSNESS [None]
  - TONIC CONVULSION [None]
